FAERS Safety Report 8852644 (Version 2)
Quarter: 2012Q4

REPORT INFORMATION
  Report Type: 
  Country: JP (occurrence: JP)
  Receive Date: 20121022
  Receipt Date: 20121107
  Transmission Date: 20130627
  Serious: Yes (Hospitalization)
  Sender: FDA-Public Use
  Company Number: JP-B.I. PHARMACEUTICALS,INC./RIDGEFIELD-2012-BP-25681NB

PATIENT
  Age: 64 Year
  Sex: Male

DRUGS (2)
  1. BI-SIFROL [Suspect]
     Indication: PARKINSON^S DISEASE
     Dosage: 1.5 mg
     Route: 048
  2. MENESIT [Concomitant]
     Indication: PARKINSON^S DISEASE
     Dosage: 400 mg
     Route: 048

REACTIONS (1)
  - Pneumonia aspiration [Unknown]
